FAERS Safety Report 9699498 (Version 2)
Quarter: 2013Q4

REPORT INFORMATION
  Report Type: Spontaneous
  Country: US (occurrence: US)
  Receive Date: 20131120
  Receipt Date: 20131125
  Transmission Date: 20140711
  Serious: No
  Sender: FDA-Public Use
  Company Number: US-TEVA-370335USA

PATIENT
  Age: 30 Year
  Sex: Female
  Weight: 79.9 kg

DRUGS (4)
  1. PARAGARD 380A [Suspect]
     Indication: CONTRACEPTION
     Route: 015
     Dates: start: 20121113, end: 20121113
  2. ALAVERT [Concomitant]
  3. MICRONOR [Concomitant]
     Indication: CONTRACEPTION
  4. PRENATAL VITAMINS [Concomitant]
     Indication: NUTRITIONAL SUPPLEMENTATION

REACTIONS (2)
  - Vaginal haemorrhage [Recovered/Resolved]
  - Complication of device insertion [Recovered/Resolved]
